FAERS Safety Report 20797390 (Version 3)
Quarter: 2022Q2

REPORT INFORMATION
  Report Type: Report from Study
  Country: US (occurrence: US)
  Receive Date: 20220506
  Receipt Date: 20220512
  Transmission Date: 20220721
  Serious: No
  Sender: FDA-Public Use
  Company Number: US-NOVARTISTESTPH-NVSC2022US104060

PATIENT
  Sex: Female

DRUGS (2)
  1. XIIDRA [Suspect]
     Active Substance: LIFITEGRAST
     Indication: Dry eye
     Dosage: 3 DRP, BID
     Route: 065
     Dates: start: 202204
  2. XIIDRA [Suspect]
     Active Substance: LIFITEGRAST
     Dosage: UNK
     Route: 065
     Dates: start: 20220406

REACTIONS (3)
  - Vision blurred [Unknown]
  - Extra dose administered [Recovering/Resolving]
  - Drug ineffective [Recovering/Resolving]
